FAERS Safety Report 14137760 (Version 2)
Quarter: 2017Q4

REPORT INFORMATION
  Report Type: Spontaneous
  Country: JP (occurrence: JP)
  Receive Date: 20171027
  Receipt Date: 20171106
  Transmission Date: 20180321
  Serious: Yes (Hospitalization)
  Sender: FDA-Public Use
  Company Number: JP-DSJP-DSJ-2017-148996

PATIENT

DRUGS (12)
  1. OLMETEC [Suspect]
     Active Substance: OLMESARTAN MEDOXOMIL
     Indication: PRODUCT USED FOR UNKNOWN INDICATION
     Dosage: UNK
     Route: 065
  2. LYRICA [Concomitant]
     Active Substance: PREGABALIN
  3. INSULIN [Concomitant]
     Active Substance: INSULIN NOS
  4. BAYASPIRIN [Concomitant]
     Active Substance: ASPIRIN
  5. GOSHAJINKIGAN [Concomitant]
     Active Substance: HERBALS
  6. TULOBUTEROL [Concomitant]
     Active Substance: TULOBUTEROL
     Route: 003
  7. EFIENT [Suspect]
     Active Substance: PRASUGREL HYDROCHLORIDE
     Indication: PRODUCT USED FOR UNKNOWN INDICATION
     Dosage: 3.75 MG, UNK
     Route: 065
     Dates: start: 20170809
  8. LIMAPROST [Concomitant]
     Active Substance: LIMAPROST
  9. TAKECAB [Concomitant]
     Active Substance: VONOPRAZAN FUMURATE
  10. SHAKUYAKUKANZOTO [Concomitant]
     Active Substance: HERBALS
  11. CALBLOCK [Suspect]
     Active Substance: AZELNIDIPINE
     Indication: PRODUCT USED FOR UNKNOWN INDICATION
     Dosage: UNK
     Route: 065
  12. CILNIDIPINE [Concomitant]
     Active Substance: CILNIDIPINE

REACTIONS (2)
  - Hospitalisation [Unknown]
  - Alopecia [Not Recovered/Not Resolved]
